FAERS Safety Report 10239553 (Version 1)
Quarter: 2014Q2

REPORT INFORMATION
  Report Type: Report from Study
  Country: US (occurrence: US)
  Receive Date: 20140616
  Receipt Date: 20140616
  Transmission Date: 20141212
  Serious: Yes (Other)
  Sender: FDA-Public Use
  Company Number: US-BRISTOL-MYERS SQUIBB COMPANY-20961173

PATIENT
  Age: 57 Year
  Sex: Female
  Weight: 90.7 kg

DRUGS (1)
  1. ORENCIA [Suspect]
     Indication: RHEUMATOID ARTHRITIS
     Dosage: INTERRUPTED END OF APR-2014
     Route: 042
     Dates: start: 20140204

REACTIONS (4)
  - Back disorder [Unknown]
  - Drug dose omission [Unknown]
  - Fall [Unknown]
  - Rheumatoid arthritis [Unknown]
